FAERS Safety Report 18328684 (Version 1)
Quarter: 2020Q3

REPORT INFORMATION
  Report Type: Spontaneous
  Country: US (occurrence: US)
  Receive Date: 20200929
  Receipt Date: 20200929
  Transmission Date: 20201103
  Serious: Yes (Hospitalization)
  Sender: FDA-Public Use
  Company Number: None

PATIENT
  Age: 88 Year
  Sex: Male
  Weight: 98.79 kg

DRUGS (20)
  1. ASPIRIN EC [Concomitant]
     Active Substance: ASPIRIN
  2. VITAMIN D3 [Concomitant]
     Active Substance: CHOLECALCIFEROL
  3. FAMOTIDINE. [Concomitant]
     Active Substance: FAMOTIDINE
  4. MULTIVITAMIN ADULTS [Concomitant]
  5. ESCITALOPRAM OXALATE. [Concomitant]
     Active Substance: ESCITALOPRAM OXALATE
  6. ELIGARD [Concomitant]
     Active Substance: LEUPROLIDE ACETATE
  7. ERLEADA [Suspect]
     Active Substance: APALUTAMIDE
     Indication: PROSTATE CANCER
     Route: 048
     Dates: start: 20191001
  8. NITROGLYCERIN. [Concomitant]
     Active Substance: NITROGLYCERIN
  9. CALCIUM CARBONATE ANTACID [Concomitant]
  10. LISINOPRIL. [Concomitant]
     Active Substance: LISINOPRIL
  11. METOPROLOL SUCCINATE ER [Concomitant]
     Active Substance: METOPROLOL SUCCINATE
  12. CROMOLYN SODIUM. [Concomitant]
     Active Substance: CROMOLYN SODIUM
  13. FLOMAX [Concomitant]
     Active Substance: TAMSULOSIN HYDROCHLORIDE
  14. CLOPIDOGREL BISULFATE. [Concomitant]
     Active Substance: CLOPIDOGREL BISULFATE
  15. GLUCOSAMINE CHONDR COMPLEX [Concomitant]
     Active Substance: CHONDROITIN SULFATE (BOVINE)\GLUCOSAMINE HYDROCHLORIDE
  16. CRESTOR [Concomitant]
     Active Substance: ROSUVASTATIN CALCIUM
  17. SODIUM CHLORIDE. [Concomitant]
     Active Substance: SODIUM CHLORIDE
  18. DOCUSATE SODIUM. [Concomitant]
     Active Substance: DOCUSATE SODIUM
  19. HYDRALAZINE HCL [Concomitant]
     Active Substance: HYDRALAZINE HYDROCHLORIDE
  20. ISOSORBIDE MONONITRATE ER [Concomitant]
     Active Substance: ISOSORBIDE MONONITRATE

REACTIONS (3)
  - Upper limb fracture [None]
  - Hip fracture [None]
  - Fall [None]

NARRATIVE: CASE EVENT DATE: 20200914
